FAERS Safety Report 16463141 (Version 4)
Quarter: 2020Q1

REPORT INFORMATION
  Report Type: Spontaneous
  Country: IT (occurrence: IT)
  Receive Date: 20190621
  Receipt Date: 20200227
  Transmission Date: 20200409
  Serious: Yes (Hospitalization)
  Sender: FDA-Public Use
  Company Number: IT-ROCHE-2340277

PATIENT
  Age: 60 Year
  Sex: Male

DRUGS (5)
  1. PREDNISONE. [Concomitant]
     Active Substance: PREDNISONE
  2. METHOTREXATE. [Concomitant]
     Active Substance: METHOTREXATE
  3. RITUXIMAB. [Suspect]
     Active Substance: RITUXIMAB
     Indication: PEMPHIGOID
     Dosage: 2 X 1000 MG DOSES
     Route: 041
  4. CYCLOSPORINE. [Concomitant]
     Active Substance: CYCLOSPORINE
  5. DAPSONE. [Concomitant]
     Active Substance: DAPSONE

REACTIONS (8)
  - Osteoporosis [Unknown]
  - Myopathy [Unknown]
  - Pemphigoid [Recovered/Resolved]
  - Off label use [Unknown]
  - Treatment failure [Unknown]
  - Condition aggravated [Recovered/Resolved]
  - Hypertension [Unknown]
  - Intentional product use issue [Unknown]
